FAERS Safety Report 23338978 (Version 1)
Quarter: 2023Q4

REPORT INFORMATION
  Report Type: Spontaneous
  Country: FR (occurrence: FR)
  Receive Date: 20231226
  Receipt Date: 20231226
  Transmission Date: 20240109
  Serious: Yes (Other)
  Sender: FDA-Public Use
  Company Number: FR-Merck Healthcare KGaA-2023495514

PATIENT
  Sex: Female

DRUGS (5)
  1. LEVOTHYROXINE [Suspect]
     Active Substance: LEVOTHYROXINE
     Indication: Post procedural hypothyroidism
  2. ELIQUIS [Concomitant]
     Active Substance: APIXABAN
     Indication: Product used for unknown indication
     Dosage: IN THE MORNING
  3. ANASTROZOLE [Concomitant]
     Active Substance: ANASTROZOLE
     Indication: Product used for unknown indication
     Dosage: IN THE EVENING
  4. CALCIFEDIOL [Concomitant]
     Active Substance: CALCIFEDIOL
     Indication: Product used for unknown indication
     Dosage: 15 MG/100 ML ORAL SOLUTION IN DROPS - 5 DROPS/DAY (FOR VITAMIN D)
     Route: 048
  5. ACETYLLEUCINE, L- [Concomitant]
     Active Substance: ACETYLLEUCINE, L-
     Indication: Product used for unknown indication
     Dosage: FROM TIME TO TIME

REACTIONS (4)
  - Neoplasm malignant [Unknown]
  - Phlebitis [Unknown]
  - Dizziness [Unknown]
  - Headache [Not Recovered/Not Resolved]
